FAERS Safety Report 12811124 (Version 2)
Quarter: 2016Q4

REPORT INFORMATION
  Report Type: Spontaneous
  Country: PT (occurrence: PT)
  Receive Date: 20161005
  Receipt Date: 20161020
  Transmission Date: 20170207
  Serious: Yes (Hospitalization, Other)
  Sender: FDA-Public Use
  Company Number: PT-SA-2016SA181177

PATIENT
  Age: 44 Year
  Sex: Male
  Weight: 87 kg

DRUGS (6)
  1. CATAPRESAN [Concomitant]
     Active Substance: CLONIDINE
     Dosage: 150
     Dates: start: 20101002
  2. FABRAZYME [Suspect]
     Active Substance: AGALSIDASE BETA
     Indication: FABRY^S DISEASE
     Route: 041
     Dates: start: 20160401, end: 20160916
  3. ZARATOR [Concomitant]
     Active Substance: ATORVASTATIN CALCIUM
     Dosage: ID
     Dates: start: 20101002
  4. ELIQUIS [Concomitant]
     Active Substance: APIXABAN
     Dosage: DOSE: 5 MG
     Dates: start: 20160930
  5. CO-DIOVAN [Concomitant]
     Active Substance: HYDROCHLOROTHIAZIDE\VALSARTAN
     Dosage: ID
     Dates: start: 20101002
  6. ZYLORIC [Concomitant]
     Active Substance: ALLOPURINOL
     Dosage: DOSE: 300 MG ID
     Dates: start: 20101002

REACTIONS (2)
  - Pulmonary embolism [Recovered/Resolved]
  - Deep vein thrombosis [Unknown]

NARRATIVE: CASE EVENT DATE: 20160925
